FAERS Safety Report 5828757-3 (Version None)
Quarter: 2008Q3

REPORT INFORMATION
  Report Type: 
  Country: None (occurrence: None)
  Receive Date: 20080729
  Receipt Date: 20080729
  Transmission Date: 20090109
  Serious: Yes (Life-Threatening)
  Sender: FDA-Public Use
  Company Number: None

PATIENT
  Age: 51 Year
  Sex: Female
  Weight: 83.9154 kg

DRUGS (3)
  1. PROZAC [Suspect]
  2. PAXIL [Suspect]
  3. ZOLOFT [Suspect]

REACTIONS (3)
  - BASEDOW'S DISEASE [None]
  - THYROID DISORDER [None]
  - WEIGHT INCREASED [None]
